FAERS Safety Report 18279511 (Version 1)
Quarter: 2020Q3

REPORT INFORMATION
  Report Type: Spontaneous
  Country: CA (occurrence: CA)
  Receive Date: 20200917
  Receipt Date: 20200917
  Transmission Date: 20201103
  Serious: Yes (Life-Threatening)
  Sender: FDA-Public Use
  Company Number: CA-JNJFOC-20200920051

PATIENT
  Age: 81 Year
  Sex: Female
  Weight: 60 kg

DRUGS (18)
  1. ATORVASTATIN [Concomitant]
     Active Substance: ATORVASTATIN
     Route: 065
  2. TYLENOL [Concomitant]
     Active Substance: ACETAMINOPHEN
  3. TELMISARTAN. [Concomitant]
     Active Substance: TELMISARTAN
  4. CHOLECALCIFEROL [Concomitant]
     Active Substance: CHOLECALCIFEROL
  5. METFORMIN [Concomitant]
     Active Substance: METFORMIN HYDROCHLORIDE
     Route: 065
  6. PREGABALIN. [Concomitant]
     Active Substance: PREGABALIN
     Route: 065
  7. ALLOPURINOL. [Concomitant]
     Active Substance: ALLOPURINOL
     Route: 065
  8. BISACODYL. [Concomitant]
     Active Substance: BISACODYL
  9. INVOKANA [Suspect]
     Active Substance: CANAGLIFLOZIN
     Indication: DIABETES MELLITUS
     Dosage: 4 YEARS
     Route: 048
  10. HYDROMORPHONE [Concomitant]
     Active Substance: HYDROMORPHONE
  11. INSULIN [Concomitant]
     Active Substance: INSULIN NOS
  12. POLYETHYLENE GLYCOL [Concomitant]
     Active Substance: POLYETHYLENE GLYCOLS
  13. COENZYME Q10 [Concomitant]
     Active Substance: DIETARY SUPPLEMENT\UBIDECARENONE
  14. GABAPENTIN. [Concomitant]
     Active Substance: GABAPENTIN
  15. JANUVIA [Concomitant]
     Active Substance: SITAGLIPTIN PHOSPHATE
  16. GLICLAZIDE MR STADA [Concomitant]
     Route: 065
  17. SENNA                              /00142201/ [Concomitant]
     Active Substance: SENNA LEAF
  18. MELATONIN [Concomitant]
     Active Substance: MELATONIN

REACTIONS (4)
  - Bladder dilatation [Recovered/Resolved]
  - Emphysematous cystitis [Recovered/Resolved]
  - Hydronephrosis [Recovered/Resolved]
  - Renal failure [Recovered/Resolved]
